FAERS Safety Report 22016203 (Version 1)
Quarter: 2023Q1

REPORT INFORMATION
  Report Type: Spontaneous
  Country: US (occurrence: None)
  Receive Date: 20230216
  Receipt Date: 20230216
  Transmission Date: 20230417
  Serious: No
  Sender: FDA-Public Use
  Company Number: None

PATIENT
  Age: 72 Year
  Sex: Male
  Weight: 110.7 kg

DRUGS (16)
  1. XALKORI [Suspect]
     Active Substance: CRIZOTINIB
     Indication: Lung carcinoma cell type unspecified stage 0
     Dosage: 200MG TWICE DAILY ORAL
     Route: 048
     Dates: start: 202210, end: 20230215
  2. ALBUTEROL [Concomitant]
     Active Substance: ALBUTEROL
  3. BROVANA [Concomitant]
     Active Substance: ARFORMOTEROL TARTRATE
  4. DOCUSATE SODIUM [Concomitant]
     Active Substance: DOCUSATE SODIUM
  5. FERROUS SULFATE [Concomitant]
     Active Substance: FERROUS SULFATE
  6. ALBUTEROL\IPRATROPIUM [Concomitant]
     Active Substance: ALBUTEROL\IPRATROPIUM
  7. LAMICTAL [Concomitant]
     Active Substance: LAMOTRIGINE
  8. LOSARTAN [Concomitant]
     Active Substance: LOSARTAN
  9. MULTIVIT-STRESS FORMULA-ZINC [Concomitant]
  10. DEVICE [Concomitant]
     Active Substance: DEVICE
  11. POLYETHYLENE GLYCOL 3350 [Concomitant]
     Active Substance: POLYETHYLENE GLYCOL 3350
  12. PREDNISONE [Concomitant]
     Active Substance: PREDNISONE
  13. REGLAN [Concomitant]
     Active Substance: METOCLOPRAMIDE HYDROCHLORIDE
  14. SONATA [Concomitant]
     Active Substance: ZALEPLON
  15. VITAMIN 81 [Concomitant]
  16. ZOFRAN [Concomitant]
     Active Substance: ONDANSETRON HYDROCHLORIDE

REACTIONS (1)
  - Hospice care [None]
